FAERS Safety Report 7648396-1 (Version None)
Quarter: 2011Q3

REPORT INFORMATION
  Report Type: 
  Country: None (occurrence: None)
  Receive Date: 20110801
  Receipt Date: 20110728
  Transmission Date: 20111222
  Serious: Yes (Life-Threatening, Hospitalization)
  Sender: FDA-Public Use
  Company Number: JP-PFIZER INC-2011145660

PATIENT
  Age: 81 Year
  Sex: Male

DRUGS (6)
  1. PLETAL [Concomitant]
     Dosage: UNK
     Dates: start: 20080401
  2. DIOVAN [Concomitant]
     Dosage: UNK
     Dates: start: 20080401, end: 20100101
  3. EBASTINE [Concomitant]
     Dosage: UNK
     Dates: start: 20080401
  4. DOXAZOSIN MESYLATE [Suspect]
     Dosage: UNK
     Route: 048
     Dates: start: 20110427, end: 20110622
  5. ATELEC [Suspect]
     Dosage: UNK
     Dates: start: 20110414, end: 20110622
  6. DIOVAN HCT [Concomitant]
     Dosage: UNK
     Dates: start: 20100101

REACTIONS (2)
  - THROMBOCYTOPENIA [None]
  - CEREBRAL INFARCTION [None]
